FAERS Safety Report 11699155 (Version 2)
Quarter: 2015Q4

REPORT INFORMATION
  Report Type: Spontaneous
  Country: FR (occurrence: FR)
  Receive Date: 20151104
  Receipt Date: 20151104
  Transmission Date: 20160304
  Serious: No
  Sender: FDA-Public Use
  Company Number: FR-ANTARES PHARMA, INC.-2015-LIT-ME-0082

PATIENT
  Age: 64 Year
  Sex: Female

DRUGS (1)
  1. METHOTREXATE [Suspect]
     Active Substance: METHOTREXATE
     Dosage: 15 MG, QWK
     Route: 058

REACTIONS (5)
  - Aphthous ulcer [Recovered/Resolved]
  - Anaemia [None]
  - Skin ulcer [None]
  - Thrombocytopenia [None]
  - Skin erosion [Recovered/Resolved]
